FAERS Safety Report 12632976 (Version 2)
Quarter: 2016Q3

REPORT INFORMATION
  Report Type: Spontaneous
  Country: US (occurrence: US)
  Receive Date: 20160808
  Receipt Date: 20160808
  Transmission Date: 20161109
  Serious: No
  Sender: FDA-Public Use
  Company Number: US-BEH-2016057889

PATIENT
  Sex: Male
  Weight: 32 kg

DRUGS (30)
  1. XYZAL [Concomitant]
     Active Substance: LEVOCETIRIZINE DIHYDROCHLORIDE
  2. LEVOCETIRIZINE [Concomitant]
     Active Substance: LEVOCETIRIZINE
  3. PREVACID [Concomitant]
     Active Substance: LANSOPRAZOLE
  4. ADVAIR HFA [Concomitant]
     Active Substance: FLUTICASONE PROPIONATE\SALMETEROL XINAFOATE
  5. HIZENTRA [Suspect]
     Active Substance: HUMAN IMMUNOGLOBULIN G
  6. OMNARIS [Concomitant]
     Active Substance: CICLESONIDE
  7. LACTULOSE. [Concomitant]
     Active Substance: LACTULOSE
  8. ZOFRAN [Concomitant]
     Active Substance: ONDANSETRON HYDROCHLORIDE
  9. DIASTAT [Concomitant]
     Active Substance: DIAZEPAM
  10. VITAMIN C [Concomitant]
     Active Substance: ASCORBIC ACID
  11. IBUPROFEN. [Concomitant]
     Active Substance: IBUPROFEN
  12. DIPHENHYDRAMINE. [Concomitant]
     Active Substance: DIPHENHYDRAMINE
  13. PATANASE [Concomitant]
     Active Substance: OLOPATADINE HYDROCHLORIDE
  14. VITAMIN [Concomitant]
     Active Substance: VITAMINS
  15. XOPENEX [Concomitant]
     Active Substance: LEVALBUTEROL HYDROCHLORIDE
  16. PROTOPIC [Concomitant]
     Active Substance: TACROLIMUS
  17. LAMICTIAL [Concomitant]
  18. HIZENTRA [Suspect]
     Active Substance: HUMAN IMMUNOGLOBULIN G
     Indication: HYPOGLOBULINAEMIA
     Route: 058
  19. HIZENTRA [Suspect]
     Active Substance: HUMAN IMMUNOGLOBULIN G
     Route: 058
  20. PULMICORT TURBUHALER [Concomitant]
     Active Substance: BUDESONIDE
  21. RETIN [Concomitant]
  22. HYDROXYZINE [Concomitant]
     Active Substance: HYDROXYZINE\HYDROXYZINE HYDROCHLORIDE
  23. SILVADENE [Concomitant]
     Active Substance: SILVER SULFADIAZINE
  24. EPIPEN [Concomitant]
     Active Substance: EPINEPHRINE
  25. MULTIVITAMINS WITH MINERALS [Concomitant]
     Active Substance: MINERALS\VITAMINS
  26. BACTROBAN [Concomitant]
     Active Substance: MUPIROCIN\MUPIROCIN CALCIUM
  27. DOXEPIN [Concomitant]
     Active Substance: DOXEPIN
  28. METADATE [Concomitant]
     Active Substance: METHYLPHENIDATE HYDROCHLORIDE
  29. LAMICTAL [Concomitant]
     Active Substance: LAMOTRIGINE
  30. SINGULAIR [Concomitant]
     Active Substance: MONTELUKAST SODIUM

REACTIONS (1)
  - Muscle spasms [Unknown]
